FAERS Safety Report 8964594 (Version 1)
Quarter: 2012Q4

REPORT INFORMATION
  Report Type: 
  Country: NL (occurrence: NL)
  Receive Date: 20121213
  Receipt Date: 20121213
  Transmission Date: 20130627
  Serious: Yes (Hospitalization)
  Sender: FDA-Public Use
  Company Number: NL-PFIZER INC-2012310063

PATIENT
  Age: 66 Year
  Sex: Female
  Weight: 87.5 kg

DRUGS (16)
  1. GENOTROPIN [Suspect]
     Dosage: 0.8 mg, 1x/day,7 injections/week.
     Route: 058
     Dates: start: 20010611
  2. ESTROGENS [Concomitant]
     Indication: LUTEINISING HORMONE DEFICIENCY
     Dosage: UNK
     Dates: start: 19810615
  3. ESTROGENS [Concomitant]
     Indication: FOLLICLE-STIMULATING HORMONE DEFICIENCY
  4. ESTROGENS [Concomitant]
     Indication: OVARIAN DISORDER
  5. ESTROGENS [Concomitant]
     Indication: HYPOGONADISM
  6. PROGESTERONE [Concomitant]
     Indication: LUTEINISING HORMONE DEFICIENCY
     Dosage: UNK
     Dates: start: 19810615
  7. PROGESTERONE [Concomitant]
     Indication: FOLLICLE-STIMULATING HORMONE DEFICIENCY
  8. PROGESTERONE [Concomitant]
     Indication: OVARIAN DISORDER
  9. PROGESTERONE [Concomitant]
     Indication: HYPOGONADISM
  10. CORTISONE ACETATE [Concomitant]
     Indication: ACTH DECREASED
     Dosage: UNK
     Dates: start: 19841115
  11. LEVOTHYROXINE [Concomitant]
     Indication: TSH DECREASED
     Dosage: UNK
     Dates: start: 19841115
  12. LEVOTHYROXINE [Concomitant]
     Indication: PRIMARY HYPOTHYROIDISM
  13. METOPROLOL [Concomitant]
     Indication: ESSENTIAL HYPERTENSION
     Dosage: UNK
     Dates: start: 19940615
  14. DILTIAZEM [Concomitant]
     Indication: ESSENTIAL HYPERTENSION
     Dosage: UNK
     Dates: start: 19950615
  15. LOSARTAN [Concomitant]
     Indication: ESSENTIAL HYPERTENSION
     Dosage: UNK
     Dates: start: 19970615
  16. ATORVASTATIN [Concomitant]
     Indication: HYPERTENSION
     Dosage: UNK
     Dates: start: 20021007

REACTIONS (1)
  - Arthropathy [Unknown]
